FAERS Safety Report 10459927 (Version 3)
Quarter: 2014Q4

REPORT INFORMATION
  Report Type: Spontaneous
  Country: US (occurrence: US)
  Receive Date: 20140917
  Receipt Date: 20141010
  Transmission Date: 20150528
  Serious: Yes (Hospitalization, Other)
  Sender: FDA-Public Use
  Company Number: US-009507513-2009-196587-NL

PATIENT
  Sex: Female
  Weight: 83.1 kg

DRUGS (2)
  1. NUVARING [Suspect]
     Active Substance: ETHINYL ESTRADIOL\ETONOGESTREL
     Indication: CONTRACEPTION
     Dosage: 1 DF, UNK
     Route: 067
     Dates: start: 200609, end: 200706
  2. PROVENTIL [Concomitant]
     Active Substance: ALBUTEROL
     Dosage: 90 ?G, QID
     Route: 048

REACTIONS (10)
  - Renal vein thrombosis [Recovered/Resolved]
  - Embolism venous [Unknown]
  - Dizziness [Unknown]
  - Maternal exposure before pregnancy [Unknown]
  - Chlamydial infection [Unknown]
  - Abortion induced [Unknown]
  - Nausea [Unknown]
  - Atelectasis [Unknown]
  - Thirst [Unknown]
  - Weight decreased [Unknown]

NARRATIVE: CASE EVENT DATE: 2007
